FAERS Safety Report 20882011 (Version 1)
Quarter: 2022Q2

REPORT INFORMATION
  Report Type: Report from Study
  Country: CA (occurrence: CA)
  Receive Date: 20220527
  Receipt Date: 20220527
  Transmission Date: 20220721
  Serious: Yes (Other)
  Sender: FDA-Public Use
  Company Number: CA-ABBVIE-22K-028-4409949-00

PATIENT
  Sex: Male

DRUGS (1)
  1. HUMIRA [Suspect]
     Active Substance: ADALIMUMAB
     Indication: Crohn^s disease
     Route: 058
     Dates: start: 20141223

REACTIONS (3)
  - Tonsillectomy [Unknown]
  - Peritonsillar abscess [Unknown]
  - Food allergy [Unknown]

NARRATIVE: CASE EVENT DATE: 20170101
